FAERS Safety Report 12844165 (Version 1)
Quarter: 2016Q4

REPORT INFORMATION
  Report Type: Spontaneous
  Country: US (occurrence: US)
  Receive Date: 20161013
  Receipt Date: 20161013
  Transmission Date: 20170207
  Serious: No
  Sender: FDA-Public Use
  Company Number: US-ROCHE-1662569

PATIENT
  Sex: Male

DRUGS (15)
  1. ZELBORAF [Suspect]
     Active Substance: VEMURAFENIB
     Indication: MALIGNANT MELANOMA
     Dosage: 4 TABLETS BY MOUTH EVERY 12 HOURS
     Route: 048
     Dates: start: 20130917
  2. CLONIDINE HCL [Concomitant]
     Active Substance: CLONIDINE HYDROCHLORIDE
  3. TRAZODONE HYDROCHLORIDE. [Concomitant]
     Active Substance: TRAZODONE HYDROCHLORIDE
  4. RENVELA [Concomitant]
     Active Substance: SEVELAMER CARBONATE
  5. SERTRALINE HCL [Concomitant]
     Active Substance: SERTRALINE HYDROCHLORIDE
  6. ONDANSETRON [Concomitant]
     Active Substance: ONDANSETRON
  7. AMLODIPINE BESYLATE. [Concomitant]
     Active Substance: AMLODIPINE BESYLATE
  8. LORAZEPAM. [Concomitant]
     Active Substance: LORAZEPAM
  9. DIAZEPAM. [Concomitant]
     Active Substance: DIAZEPAM
     Route: 065
  10. LABETALOL HCL [Concomitant]
     Active Substance: LABETALOL HYDROCHLORIDE
  11. HYDRALAZINE HCL [Concomitant]
     Active Substance: HYDRALAZINE HYDROCHLORIDE
  12. NIFEDIPINE. [Concomitant]
     Active Substance: NIFEDIPINE
  13. CALCIUM ACETATE. [Concomitant]
     Active Substance: CALCIUM ACETATE
  14. LISINOPRIL. [Concomitant]
     Active Substance: LISINOPRIL
  15. DONEPEZIL HCL [Concomitant]
     Active Substance: DONEPEZIL HYDROCHLORIDE

REACTIONS (2)
  - Drug ineffective [Unknown]
  - Disease progression [Unknown]
